FAERS Safety Report 4380257-6 (Version None)
Quarter: 2004Q2

REPORT INFORMATION
  Report Type: 
  Country: None (occurrence: None)
  Receive Date: 20040616
  Receipt Date: 20040616
  Transmission Date: 20050107
  Serious: Yes (Other)
  Sender: FDA-Public Use
  Company Number: None

PATIENT
  Age: 81 Year
  Sex: Male
  Weight: 68.0396 kg

DRUGS (1)
  1. TRIAMETERENE AND HYDROCHLOROTHIAZIDE [Suspect]
     Indication: BLOOD PRESSURE INCREASED
     Dosage: 1 TABLET/.DAY

REACTIONS (4)
  - ABNORMAL DREAMS [None]
  - ERECTILE DYSFUNCTION [None]
  - HYPERTENSION [None]
  - SLEEP DISORDER [None]
